FAERS Safety Report 19029678 (Version 2)
Quarter: 2021Q2

REPORT INFORMATION
  Report Type: Report from Study
  Country: None (occurrence: CA)
  Receive Date: 20210318
  Receipt Date: 20210511
  Transmission Date: 20210717
  Serious: Yes (Hospitalization, Other)
  Sender: FDA-Public Use
  Company Number: CA-ABBVIE-21K-028-3818846-00

PATIENT
  Sex: Male

DRUGS (1)
  1. RINVOQ [Suspect]
     Active Substance: UPADACITINIB
     Indication: RHEUMATOID ARTHRITIS
     Route: 048
     Dates: start: 20201014, end: 202104

REACTIONS (4)
  - Pain in extremity [Unknown]
  - Dyspnoea [Not Recovered/Not Resolved]
  - Coronary artery occlusion [Unknown]
  - Cardiac murmur [Unknown]
